FAERS Safety Report 15708664 (Version 1)
Quarter: 2018Q4

REPORT INFORMATION
  Report Type: Other
  Country: BE (occurrence: BE)
  Receive Date: 20181211
  Receipt Date: 20181211
  Transmission Date: 20190205
  Serious: Yes (Hospitalization)
  Sender: FDA-Public Use
  Company Number: BE-APOTEX-2018AP026558

PATIENT
  Sex: Female

DRUGS (2)
  1. BELSAR                             /01635402/ [Concomitant]
     Indication: PRODUCT USED FOR UNKNOWN INDICATION
     Dosage: 1 DF, QD (ONCE A DAY)
     Route: 048
  2. LOSARTAN. [Suspect]
     Active Substance: LOSARTAN
     Indication: PRODUCT USED FOR UNKNOWN INDICATION
     Dosage: 100 MG, QD (ONCE A DAY)
     Route: 048

REACTIONS (3)
  - Apathy [Unknown]
  - Balance disorder [Unknown]
  - Oedema peripheral [Unknown]
